FAERS Safety Report 6834799-1 (Version None)
Quarter: 2010Q3

REPORT INFORMATION
  Report Type: 
  Country: None (occurrence: None)
  Receive Date: 20100712
  Receipt Date: 20070411
  Transmission Date: 20110219
  Serious: No
  Sender: FDA-Public Use
  Company Number: US-PFIZER INC-2007029681

PATIENT
  Age: 46 Year
  Sex: Male
  Weight: 90.72 kg

DRUGS (1)
  1. CHANTIX [Suspect]
     Indication: SMOKING CESSATION THERAPY
     Route: 048
     Dates: start: 20070308

REACTIONS (3)
  - INSOMNIA [None]
  - NAUSEA [None]
  - WEIGHT INCREASED [None]
